FAERS Safety Report 11455869 (Version 1)
Quarter: 2015Q3

REPORT INFORMATION
  Report Type: Spontaneous
  Country: US (occurrence: US)
  Receive Date: 20150903
  Receipt Date: 20150903
  Transmission Date: 20151125
  Serious: No
  Sender: FDA-Public Use
  Company Number: US-ELI_LILLY_AND_COMPANY-US201509001119

PATIENT
  Sex: Male

DRUGS (9)
  1. HUMALOG [Suspect]
     Active Substance: INSULIN LISPRO
     Indication: TYPE 2 DIABETES MELLITUS
     Dosage: UNK UNK, PRN
     Dates: start: 201507
  2. LEVOFLOXACINE                      /01278901/ [Concomitant]
     Active Substance: LEVOFLOXACIN
  3. CALCITROL                          /00508501/ [Concomitant]
     Active Substance: CALCIUM CARBONATE\ERGOCALCIFEROL\RETINOL
  4. LISINOPRIL. [Concomitant]
     Active Substance: LISINOPRIL
  5. METOPROLOL [Concomitant]
     Active Substance: METOPROLOL
  6. PANTOPRAZOLE [Concomitant]
     Active Substance: PANTOPRAZOLE SODIUM
  7. ISOSORBIDE. [Concomitant]
     Active Substance: ISOSORBIDE
  8. GABAPENTIN. [Concomitant]
     Active Substance: GABAPENTIN
  9. NEPHRO VITE RX [Concomitant]
     Active Substance: ASCORBIC ACID\BIOTIN\CALCIUM PANTOTHENATE\CYANOCOBALAMIN\FOLIC ACID\NIACINAMIDE\PYRIDOXINE HYDROCHLORIDE\RIBOFLAVIN\THIAMINE MONONITRATE

REACTIONS (2)
  - Blood phosphorus increased [Unknown]
  - Blood glucose increased [Unknown]
